FAERS Safety Report 9633953 (Version 1)
Quarter: 2013Q4

REPORT INFORMATION
  Report Type: Spontaneous
  Country: US (occurrence: US)
  Receive Date: 20131021
  Receipt Date: 20131021
  Transmission Date: 20140711
  Serious: No
  Sender: FDA-Public Use
  Company Number: US-009507513-1310USA008135

PATIENT
  Sex: Male

DRUGS (1)
  1. NITRO-DUR [Suspect]
     Dosage: 0.6 MG/HR
     Route: 062

REACTIONS (3)
  - Circumstance or information capable of leading to medication error [Unknown]
  - Product adhesion issue [Unknown]
  - No adverse event [Unknown]
